FAERS Safety Report 11753148 (Version 1)
Quarter: 2015Q4

REPORT INFORMATION
  Report Type: Spontaneous
  Country: US (occurrence: None)
  Receive Date: 20151118
  Receipt Date: 20151118
  Transmission Date: 20160304
  Serious: Yes (Death)
  Sender: FDA-Public Use
  Company Number: None

PATIENT
  Age: 53 Year
  Sex: Male

DRUGS (12)
  1. POTASSIUM CHLORIDE. [Concomitant]
     Active Substance: POTASSIUM CHLORIDE
  2. ADVAIR HFA [Concomitant]
     Active Substance: FLUTICASONE PROPIONATE\SALMETEROL XINAFOATE
  3. ATIVAN [Concomitant]
     Active Substance: LORAZEPAM
  4. LISINOPRIL AND HYDROCHLOROTHIAZIDE [Concomitant]
     Active Substance: HYDROCHLOROTHIAZIDE\LISINOPRIL
  5. TEMAZEPAM. [Concomitant]
     Active Substance: TEMAZEPAM
  6. PANTOPRAZOLE [Concomitant]
     Active Substance: PANTOPRAZOLE SODIUM
  7. SPIRIVA [Suspect]
     Active Substance: TIOTROPIUM BROMIDE MONOHYDRATE
  8. HEMOFIL [Suspect]
     Active Substance: ANTIHEMOPHILIC FACTOR HUMAN
     Indication: FACTOR VII DEFICIENCY
     Dosage: 3000 UNITS DAILY FOR 6 DAYS THEN EVERY 2
     Route: 042
     Dates: start: 20130115, end: 20151101
  9. BACTRIM DS [Concomitant]
     Active Substance: SULFAMETHOXAZOLE\TRIMETHOPRIM
  10. DEPO-TESTOSTERONE [Concomitant]
     Active Substance: TESTOSTERONE CYPIONATE
  11. ATRIPIA [Concomitant]
  12. CREON [Concomitant]
     Active Substance: PANCRELIPASE AMYLASE\PANCRELIPASE LIPASE\PANCRELIPASE PROTEASE

REACTIONS (2)
  - Depression [None]
  - Blood urine present [None]

NARRATIVE: CASE EVENT DATE: 20151115
